FAERS Safety Report 21767047 (Version 1)
Quarter: 2022Q4

REPORT INFORMATION
  Report Type: Spontaneous
  Country: FR (occurrence: FR)
  Receive Date: 20221222
  Receipt Date: 20221222
  Transmission Date: 20230112
  Serious: Yes (Death, Life-Threatening, Hospitalization, Other)
  Sender: FDA-Public Use
  Company Number: FR-PFIZER INC-202201121886

PATIENT
  Age: 47 Year
  Sex: Female

DRUGS (17)
  1. METHOTREXATE [Suspect]
     Active Substance: METHOTREXATE
     Indication: Connective tissue disorder
     Dosage: UNK
     Route: 065
  2. ETANERCEPT [Suspect]
     Active Substance: ETANERCEPT
     Indication: Autoinflammatory disease
     Dosage: UNK
     Route: 065
  3. ADALIMUMAB [Suspect]
     Active Substance: ADALIMUMAB
     Indication: Autoinflammatory disease
     Dosage: UNK
     Route: 065
  4. TOCILIZUMAB [Suspect]
     Active Substance: TOCILIZUMAB
     Indication: Connective tissue disorder
     Dosage: UNK
     Route: 065
  5. TOCILIZUMAB [Suspect]
     Active Substance: TOCILIZUMAB
     Indication: Autoinflammatory disease
  6. RITUXIMAB [Suspect]
     Active Substance: RITUXIMAB
     Indication: Connective tissue disorder
     Dosage: UNK
     Route: 065
  7. CERTOLIZUMAB [Suspect]
     Active Substance: CERTOLIZUMAB
     Indication: Autoinflammatory disease
     Dosage: UNK
     Route: 065
  8. INFLIXIMAB [Suspect]
     Active Substance: INFLIXIMAB
     Indication: Autoinflammatory disease
     Dosage: UNK
     Route: 065
  9. USTEKINUMAB [Suspect]
     Active Substance: USTEKINUMAB
     Indication: Autoinflammatory disease
     Dosage: UNK
     Route: 065
  10. APREMILAST [Suspect]
     Active Substance: APREMILAST
     Indication: Autoinflammatory disease
     Dosage: UNK
     Route: 065
  11. PROLIA [Suspect]
     Active Substance: DENOSUMAB
     Indication: Product used for unknown indication
     Dosage: UNK, (UNIT=PREFILLED SYRINGE)
     Route: 065
  12. BARICITINIB [Suspect]
     Active Substance: BARICITINIB
     Indication: Autoinflammatory disease
     Dosage: UNK
     Route: 065
  13. TOFACITINIB CITRATE [Suspect]
     Active Substance: TOFACITINIB CITRATE
     Indication: Autoinflammatory disease
     Dosage: UNK
     Route: 065
  14. GOLIMUMAB [Suspect]
     Active Substance: GOLIMUMAB
     Indication: Product used for unknown indication
     Dosage: UNK
     Route: 065
  15. UPADACITINIB [Suspect]
     Active Substance: UPADACITINIB
     Indication: Autoinflammatory disease
     Dosage: UNK
     Route: 065
  16. SECUKINUMAB [Suspect]
     Active Substance: SECUKINUMAB
     Indication: Autoinflammatory disease
     Dosage: UNK
     Route: 065
  17. VEDOLIZUMAB [Suspect]
     Active Substance: VEDOLIZUMAB
     Indication: Autoinflammatory disease
     Dosage: UNK
     Route: 065

REACTIONS (28)
  - Death [Fatal]
  - Pneumonia pseudomonal [Fatal]
  - Acinic cell carcinoma of salivary gland [Unknown]
  - Haemophagocytic lymphohistiocytosis [Unknown]
  - Pneumonia [Unknown]
  - Device related infection [Unknown]
  - Sinusitis aspergillus [Unknown]
  - Clostridium difficile colitis [Unknown]
  - Pyelonephritis acute [Unknown]
  - Appendiceal abscess [Unknown]
  - Cytomegalovirus infection [Unknown]
  - COVID-19 [Unknown]
  - Herpes zoster [Unknown]
  - Hypoglycaemia [Unknown]
  - Dry skin [Unknown]
  - Myoclonus [Unknown]
  - Abdominal pain [Unknown]
  - Weight increased [Unknown]
  - Rash [Unknown]
  - Therapy non-responder [Unknown]
  - Loss of therapeutic response [Unknown]
  - Vulvovaginal mycotic infection [Unknown]
  - Conjunctivitis [Unknown]
  - Headache [Unknown]
  - Sinusitis [Unknown]
  - Rhinitis [Unknown]
  - Skin infection [Unknown]
  - Gastrointestinal infection [Unknown]
